FAERS Safety Report 25551379 (Version 1)
Quarter: 2025Q3

REPORT INFORMATION
  Report Type: Report from Study
  Country: US (occurrence: US)
  Receive Date: 20250714
  Receipt Date: 20250714
  Transmission Date: 20251021
  Serious: Yes (Hospitalization, Other)
  Sender: PFIZER
  Company Number: US-PFIZER INC-PV202500045666

PATIENT
  Age: 48 Year
  Sex: Female

DRUGS (9)
  1. MEKTOVI [Suspect]
     Active Substance: BINIMETINIB
     Indication: Malignant melanoma
     Dosage: 3-15 MG TABLETS 2 TIMES A DAY; 45 MG ORALLY TWICE DAILY
     Route: 048
     Dates: start: 20250408, end: 20250428
  2. MEKTOVI [Suspect]
     Active Substance: BINIMETINIB
     Dosage: 30 MG
     Route: 048
     Dates: start: 20250408
  3. MEKTOVI [Suspect]
     Active Substance: BINIMETINIB
     Dosage: 30 MG TWICE DAILY
     Route: 048
     Dates: start: 20250508
  4. MEKTOVI [Suspect]
     Active Substance: BINIMETINIB
     Dosage: 30 MG, 2X/DAY
     Dates: end: 20250616
  5. BRAFTOVI [Suspect]
     Active Substance: ENCORAFENIB
     Indication: Malignant melanoma
     Dosage: 6-75 MG CAPSULES; 450 MG ORALLY ONCE DAILY
     Route: 048
     Dates: start: 20250408, end: 20250427
  6. BRAFTOVI [Suspect]
     Active Substance: ENCORAFENIB
     Dosage: 300 MG, 1X/DAY
     Route: 048
     Dates: start: 20250408
  7. BRAFTOVI [Suspect]
     Active Substance: ENCORAFENIB
     Dosage: 225 MG (3-75 MG CAPSULES) ONCE DAILY
     Route: 048
     Dates: start: 20250508
  8. BRAFTOVI [Suspect]
     Active Substance: ENCORAFENIB
     Dosage: 225 MG (3-75 MG CAPSULES) ONCE DAILY
     Route: 048
  9. BRAFTOVI [Suspect]
     Active Substance: ENCORAFENIB
     Dosage: 300 MG, 1X/DAY
     Dates: end: 20250616

REACTIONS (16)
  - Cerebral haemorrhage [Recovered/Resolved]
  - Metastases to central nervous system [Recovered/Resolved]
  - Thrombosis [Recovered/Resolved]
  - Ascites [Not Recovered/Not Resolved]
  - Migraine [Recovering/Resolving]
  - Visual field defect [Not Recovered/Not Resolved]
  - Visual impairment [Not Recovered/Not Resolved]
  - Fatigue [Not Recovered/Not Resolved]
  - Nausea [Recovering/Resolving]
  - Constipation [Not Recovered/Not Resolved]
  - Abdominal distension [Unknown]
  - Weight increased [Recovering/Resolving]
  - Oedema peripheral [Recovered/Resolved]
  - Chest pain [Recovered/Resolved]
  - Dyspnoea [Recovering/Resolving]
  - Cough [Recovering/Resolving]
